FAERS Safety Report 5083114-5 (Version None)
Quarter: 2006Q3

REPORT INFORMATION
  Report Type: 
  Country: None (occurrence: None)
  Receive Date: 20060720
  Receipt Date: 20060509
  Transmission Date: 20061208
  Serious: Yes (Death, Hospitalization)
  Sender: FDA-Public Use
  Company Number: 2006063106

PATIENT
  Sex: Male

DRUGS (1)
  1. CELECOXIB (CELECOXIB) [Suspect]
     Indication: PAIN
     Dosage: 400 MG (200 MG, 2 IN 1 D)
     Dates: start: 20021023, end: 20040901

REACTIONS (3)
  - DEPRESSION [None]
  - GASTROINTESTINAL DISORDER [None]
  - MYOCARDIAL INFARCTION [None]
